FAERS Safety Report 8821337 (Version 2)
Quarter: 2012Q4

REPORT INFORMATION
  Report Type: 
  Country: US (occurrence: US)
  Receive Date: 20121002
  Receipt Date: 20121115
  Transmission Date: 20130627
  Serious: No
  Sender: FDA-Public Use
  Company Number: US-JNJFOC-20120909182

PATIENT
  Sex: Female

DRUGS (11)
  1. INVEGA SUSTENNA [Suspect]
     Indication: SCHIZOPHRENIA
     Route: 030
     Dates: start: 20120830
  2. HALDOL DECANOATE [Suspect]
     Indication: PRODUCT USED FOR UNKNOWN INDICATION
     Route: 030
  3. UNKNOWN MEDICATION [Concomitant]
     Dosage: 800 unspecifed
     Route: 065
  4. ZYPREXA [Concomitant]
     Indication: PRODUCT USED FOR UNKNOWN INDICATION
     Route: 065
  5. BENZTROPINE [Concomitant]
     Indication: PRODUCT USED FOR UNKNOWN INDICATION
     Route: 065
  6. DEPAKOTE ER [Concomitant]
     Indication: PRODUCT USED FOR UNKNOWN INDICATION
     Dosage: 1 morning and 3 in the evening
     Route: 065
  7. LORAZEPAM [Concomitant]
     Route: 065
  8. OLANZAPINE [Concomitant]
     Route: 048
  9. OLANZAPINE [Concomitant]
     Route: 048
  10. LISINOPRIL [Concomitant]
     Route: 065
  11. OMEPRAZOLE [Concomitant]
     Route: 065

REACTIONS (2)
  - Medication error [Unknown]
  - Schizoaffective disorder [Unknown]
